FAERS Safety Report 15540670 (Version 2)
Quarter: 2018Q4

REPORT INFORMATION
  Report Type: Spontaneous
  Country: US (occurrence: US)
  Receive Date: 20181023
  Receipt Date: 20181217
  Transmission Date: 20190205
  Serious: No
  Sender: FDA-Public Use
  Company Number: US-GLENMARK PHARMACEUTICALS-2018GMK037197

PATIENT

DRUGS (1)
  1. TROSPIUM CHLORIDE TABLETS [Suspect]
     Active Substance: TROSPIUM CHLORIDE
     Indication: POLLAKIURIA
     Dosage: 20 MG, BID
     Route: 048
     Dates: start: 20180301, end: 20180312

REACTIONS (2)
  - Ejaculation disorder [Not Recovered/Not Resolved]
  - Drug ineffective [Unknown]

NARRATIVE: CASE EVENT DATE: 20180308
